FAERS Safety Report 5169580-5 (Version None)
Quarter: 2006Q4

REPORT INFORMATION
  Report Type: 
  Country: None (occurrence: None)
  Receive Date: 20060918
  Receipt Date: 20051019
  Transmission Date: 20070319
  Serious: Yes (Other)
  Sender: FDA-Public Use
  Company Number: US-JNJFOC-20051004623

PATIENT
  Age: 11 Year
  Sex: Male
  Weight: 30.391 kg

DRUGS (1)
  1. TOPAMAX [Suspect]
     Indication: EPILEPSY
     Dosage: 100 MG, 1 IN 1 DAY, ORAL
     Route: 048
     Dates: start: 20010101, end: 20020101

REACTIONS (5)
  - AMNESIA [None]
  - ANHIDROSIS [None]
  - COGNITIVE DISORDER [None]
  - MIGRAINE [None]
  - THERAPEUTIC RESPONSE DECREASED [None]
